FAERS Safety Report 6679562-X (Version None)
Quarter: 2010Q2

REPORT INFORMATION
  Report Type: 
  Country: None (occurrence: None)
  Receive Date: 20100413
  Receipt Date: 20100412
  Transmission Date: 20101027
  Serious: Yes (Death)
  Sender: FDA-Public Use
  Company Number: PHHY2010IN22468

PATIENT
  Age: 25 Year
  Sex: Male

DRUGS (1)
  1. ASUNRA [Suspect]
     Dosage: 800 MG, UNK
     Route: 048

REACTIONS (2)
  - BONE MARROW TRANSPLANT [None]
  - POST PROCEDURAL COMPLICATION [None]
